FAERS Safety Report 8973994 (Version 1)
Quarter: 2012Q4

REPORT INFORMATION
  Report Type: 
  Country: US (occurrence: US)
  Receive Date: 20121218
  Receipt Date: 20121218
  Transmission Date: 20130627
  Serious: No
  Sender: FDA-Public Use
  Company Number: US-BRISTOL-MYERS SQUIBB COMPANY-16834194

PATIENT
  Sex: Male

DRUGS (1)
  1. ABILIFY [Suspect]
     Dosage: Dose reduced from 10mg to 5mg then 2mg

REACTIONS (3)
  - Tremor [Not Recovered/Not Resolved]
  - Anger [Unknown]
  - Aggression [Unknown]
